FAERS Safety Report 7626396-5 (Version None)
Quarter: 2011Q3

REPORT INFORMATION
  Report Type: 
  Country: None (occurrence: None)
  Receive Date: 20110714
  Receipt Date: 20110704
  Transmission Date: 20111222
  Serious: Yes (Hospitalization)
  Sender: FDA-Public Use
  Company Number: 1000007738

PATIENT
  Age: 54 Year
  Sex: Female

DRUGS (7)
  1. XANAX [Concomitant]
  2. PERCOCET [Concomitant]
  3. SAVELLA [Suspect]
     Indication: FIBROMYALGIA
     Dosage: 12.5 MG (12.5 MG, 1 IN 1 D), ORAL
     Route: 048
     Dates: start: 20090701, end: 20090701
  4. SAVELLA [Suspect]
     Indication: FIBROMYALGIA
     Dosage: TITRATED TO 80 MG QAM; 12.5 MG QPM, ORAL
     Route: 048
     Dates: start: 20090701, end: 20090701
  5. DARVOCET [Concomitant]
  6. ZOMIG [Concomitant]
  7. WELLBUTRIN SR [Concomitant]

REACTIONS (7)
  - BLOOD TRIGLYCERIDES INCREASED [None]
  - ACUTE MYOCARDIAL INFARCTION [None]
  - LOW DENSITY LIPOPROTEIN INCREASED [None]
  - ACUTE CORONARY SYNDROME [None]
  - CHEST PAIN [None]
  - VISION BLURRED [None]
  - NAUSEA [None]
